FAERS Safety Report 8717498 (Version 4)
Quarter: 2012Q4

REPORT INFORMATION
  Report Type: 
  Country: EG (occurrence: EG)
  Receive Date: 20120810
  Receipt Date: 20120920
  Transmission Date: 20130627
  Serious: Yes (Hospitalization, Other)
  Sender: FDA-Public Use
  Company Number: EG-AMGEN-EGYSP2012049625

PATIENT
  Age: 49 Year
  Sex: Male
  Weight: 21 kg

DRUGS (5)
  1. NPLATE [Suspect]
     Indication: IDIOPATHIC THROMBOCYTOPENIC PURPURA
     Dosage: 3 mug/kg, qd
     Route: 058
     Dates: start: 20120619
  2. NPLATE [Suspect]
     Dosage: 1 mug/kg, qwk
  3. NPLATE [Suspect]
     Dosage: 2 mug/kg, qwk
  4. NPLATE [Suspect]
     Dosage: 7 mug/kg, qwk
  5. NPLATE [Suspect]
     Dosage: UNK UNK, qd
     Dates: end: 20100814

REACTIONS (4)
  - Therapeutic response decreased [Unknown]
  - Asthma [Recovered/Resolved]
  - Influenza like illness [Unknown]
  - Infection [Unknown]
